FAERS Safety Report 25272826 (Version 1)
Quarter: 2025Q2

REPORT INFORMATION
  Report Type: Spontaneous
  Country: US (occurrence: None)
  Receive Date: 20250505
  Receipt Date: 20250505
  Transmission Date: 20250717
  Serious: Yes (unspecified)
  Sender: FDA-CTU
  Company Number: None

PATIENT

DRUGS (1)
  1. NOREPINEPHRINE BITARTRATE [Suspect]
     Active Substance: NOREPINEPHRINE BITARTRATE
     Dates: start: 20250409

REACTIONS (5)
  - Product preparation error [None]
  - Product preparation error [None]
  - Device programming error [None]
  - Underdose [None]
  - Drug monitoring procedure incorrectly performed [None]

NARRATIVE: CASE EVENT DATE: 20250409
